FAERS Safety Report 7589882-2 (Version None)
Quarter: 2011Q3

REPORT INFORMATION
  Report Type: 
  Country: None (occurrence: None)
  Receive Date: 20110705
  Receipt Date: 20110626
  Transmission Date: 20111222
  Serious: Yes (Other)
  Sender: FDA-Public Use
  Company Number: US-JNJFOC-20110612190

PATIENT
  Sex: Female

DRUGS (6)
  1. TOPAMAX [Suspect]
     Dosage: DOSE INCREASED TO 25 MG PER DAY FOR 8 DAYS UNTIL THE PATIENT REACHED 200 MG ON 22-JUN-2011
     Route: 048
     Dates: start: 20110614, end: 20110622
  2. ORAP [Concomitant]
     Route: 048
     Dates: end: 20110601
  3. TOPAMAX [Suspect]
     Indication: BIPOLAR DISORDER
     Route: 048
     Dates: start: 20110622
  4. LASIX [Concomitant]
     Route: 048
     Dates: end: 20110601
  5. LASIX [Concomitant]
     Route: 048
     Dates: start: 20110601
  6. ORAP [Concomitant]
     Indication: TOURETTE'S DISORDER
     Route: 048
     Dates: start: 20110601

REACTIONS (5)
  - DYSPNOEA EXERTIONAL [None]
  - TOURETTE'S DISORDER [None]
  - ABNORMAL LOSS OF WEIGHT [None]
  - BURN OESOPHAGEAL [None]
  - RENAL FAILURE [None]
